FAERS Safety Report 8961231 (Version 1)
Quarter: 2012Q4

REPORT INFORMATION
  Report Type: 
  Country: IT (occurrence: IT)
  Receive Date: 20121212
  Receipt Date: 20121212
  Transmission Date: 20130627
  Serious: Yes (Hospitalization)
  Sender: FDA-Public Use
  Company Number: IT-TEVA-374091ISR

PATIENT
  Age: 48 Year
  Sex: Male

DRUGS (3)
  1. FLUOROURACILE [Suspect]
     Dosage: 7160 mg in total
     Route: 042
     Dates: start: 20120704, end: 20120704
  2. CISPLATINO [Suspect]
     Dosage: 143.2 mg in total
     Route: 042
     Dates: start: 20120704, end: 20120704
  3. ERBITUX [Suspect]
     Dosage: 447.5 mg in total
     Route: 042
     Dates: start: 20120704, end: 20120704

REACTIONS (1)
  - VIIth nerve paralysis [Not Recovered/Not Resolved]
